FAERS Safety Report 9565322 (Version 2)
Quarter: 2015Q1

REPORT INFORMATION
  Report Type: Spontaneous
  Country: AR (occurrence: AR)
  Receive Date: 20130930
  Receipt Date: 20150311
  Transmission Date: 20150721
  Serious: Yes (Hospitalization)
  Sender: FDA-Public Use
  Company Number: AR-RANBAXY-2013R1-73695

PATIENT
  Age: 51 Year
  Sex: Female

DRUGS (1)
  1. HYDROCHLOROTHIAZIDE. [Suspect]
     Active Substance: HYDROCHLOROTHIAZIDE
     Indication: DIURETIC THERAPY
     Dosage: 25 MG, DAILY
     Route: 065

REACTIONS (10)
  - Hyponatraemia [Recovering/Resolving]
  - Metabolic alkalosis [Recovering/Resolving]
  - Rhabdomyolysis [Recovering/Resolving]
  - Anaemia [Recovering/Resolving]
  - Leukocytosis [Recovering/Resolving]
  - Hypovolaemia [Recovering/Resolving]
  - Orthostatic hypotension [Recovering/Resolving]
  - Sinus tachycardia [Recovering/Resolving]
  - Thrombocytopenia [Recovering/Resolving]
  - Hyperuricosuria [Recovering/Resolving]
